FAERS Safety Report 19444710 (Version 3)
Quarter: 2021Q3

REPORT INFORMATION
  Report Type: Spontaneous
  Country: CN (occurrence: CN)
  Receive Date: 20210621
  Receipt Date: 20210816
  Transmission Date: 20211014
  Serious: Yes (Hospitalization, Other)
  Sender: FDA-Public Use
  Company Number: CN-SA-2021SA203585

PATIENT
  Age: 42 Year
  Sex: Male

DRUGS (2)
  1. LOBAPLATIN [Suspect]
     Active Substance: LOBAPLATIN
     Indication: ADENOCARCINOMA GASTRIC
     Dosage: UNK
     Dates: start: 201909
  2. DOCETAXEL. [Suspect]
     Active Substance: DOCETAXEL
     Indication: ADENOCARCINOMA GASTRIC
     Dosage: UNK
     Dates: start: 201909

REACTIONS (2)
  - Asymptomatic COVID-19 [Recovered/Resolved]
  - Immunodeficiency [Recovered/Resolved]

NARRATIVE: CASE EVENT DATE: 20200222
